FAERS Safety Report 22000876 (Version 1)
Quarter: 2023Q1

REPORT INFORMATION
  Report Type: Report from Study
  Country: US (occurrence: US)
  Receive Date: 20230216
  Receipt Date: 20230216
  Transmission Date: 20230417
  Serious: Yes (Hospitalization, Other)
  Sender: FDA-Public Use
  Company Number: US-GILEAD-2023-0616532

PATIENT
  Age: 42 Year
  Sex: Male

DRUGS (29)
  1. AZTREONAM LYSINE [Suspect]
     Active Substance: AZTREONAM LYSINE
     Indication: Pseudomonas infection
     Dosage: RECONSTITUTE WITH 1ML SUPPLIED DILUENT + NEBULIZE 3 TIMES DAILY FOR 28 DAYS ON, 28 DAYS OFF. (FOLLOW
     Route: 065
  2. TRANEXAMIC ACID [Concomitant]
     Active Substance: TRANEXAMIC ACID
  3. PARI [Concomitant]
  4. CREON [Concomitant]
     Active Substance: PANCRELIPASE AMYLASE\PANCRELIPASE LIPASE\PANCRELIPASE PROTEASE
  5. XYZAL ALLERGY 24HR [Concomitant]
     Active Substance: LEVOCETIRIZINE DIHYDROCHLORIDE
  6. NOVOLOG [Concomitant]
     Active Substance: INSULIN ASPART
  7. LANTUS [Concomitant]
     Active Substance: INSULIN GLARGINE
  8. ANASTROZOLE [Concomitant]
     Active Substance: ANASTROZOLE
  9. VITAMIN D3 [Concomitant]
     Active Substance: CHOLECALCIFEROL
  10. CLONAZEPAM [Concomitant]
     Active Substance: CLONAZEPAM
  11. CEFIXIME [Concomitant]
     Active Substance: CEFIXIME
  12. EPINEPHRINE [Concomitant]
     Active Substance: EPINEPHRINE
  13. NEXIUM I.V. [Concomitant]
     Active Substance: ESOMEPRAZOLE SODIUM
  14. MOMETASONE FUROATE [Concomitant]
     Active Substance: MOMETASONE FUROATE
  15. NORCO [Concomitant]
     Active Substance: ACETAMINOPHEN\HYDROCODONE BITARTRATE
  16. CULTURELLE [Concomitant]
     Active Substance: LACTOBACILLUS RHAMNOSUS
  17. PREVACID [Concomitant]
     Active Substance: LANSOPRAZOLE
  18. SODIUM BICARBONATE [Concomitant]
     Active Substance: SODIUM BICARBONATE
  19. SPIRIVA RESPIMAT [Concomitant]
     Active Substance: TIOTROPIUM BROMIDE
  20. URSODIOL [Concomitant]
     Active Substance: URSODIOL
  21. VITAMIN A ACETATE [Concomitant]
     Active Substance: VITAMIN A ACETATE
  22. PROAIR HFA [Concomitant]
     Active Substance: ALBUTEROL SULFATE
  23. PROVENTIL [Concomitant]
     Active Substance: ALBUTEROL
  24. VENTOLIN HFA [Concomitant]
     Active Substance: ALBUTEROL SULFATE
  25. ALBUTEROL SULFATE [Concomitant]
     Active Substance: ALBUTEROL SULFATE
  26. AZELASTINE HYDROCHLORIDE [Concomitant]
     Active Substance: AZELASTINE HYDROCHLORIDE
  27. NYSTATIN [Concomitant]
     Active Substance: NYSTATIN
  28. VITAMIN B COMPLEX [Concomitant]
     Active Substance: CYANOCOBALAMIN\DEXPANTHENOL\NIACINAMIDE\PYRIDOXINE HYDROCHLORIDE\RIBOFLAVIN 5^-PHOSPHATE SODIUM\THIA
  29. GABAPENTIN [Concomitant]
     Active Substance: GABAPENTIN

REACTIONS (1)
  - Cystic fibrosis respiratory infection suppression [Unknown]
